FAERS Safety Report 9975418 (Version 1)
Quarter: 2014Q1

REPORT INFORMATION
  Report Type: Report from Study
  Country: US (occurrence: US)
  Receive Date: 20140306
  Receipt Date: 20140306
  Transmission Date: 20141002
  Serious: No
  Sender: FDA-Public Use
  Company Number: US-ABBVIE-13P-163-1155762-00

PATIENT
  Age: 38 Year
  Sex: Male

DRUGS (1)
  1. HUMIRA [Suspect]
     Indication: PSORIASIS
     Dosage: LOADING DOSE, HELD 21 SEP 2013 DOSE
     Route: 058
     Dates: start: 20130901

REACTIONS (4)
  - Pain [Recovering/Resolving]
  - Skin exfoliation [Recovering/Resolving]
  - White blood cell count increased [Recovering/Resolving]
  - Pharyngitis streptococcal [Recovering/Resolving]
